FAERS Safety Report 10236694 (Version 2)
Quarter: 2014Q2

REPORT INFORMATION
  Report Type: Spontaneous
  Country: GB (occurrence: GB)
  Receive Date: 20140613
  Receipt Date: 20140619
  Transmission Date: 20141212
  Serious: Yes (Death)
  Sender: FDA-Public Use
  Company Number: GB-VERTEX PHARMACEUTICALS INC-2014-002699

PATIENT
  Sex: 0

DRUGS (3)
  1. INCIVO [Suspect]
     Indication: HEPATITIS C
     Route: 048
     Dates: start: 20140302
  2. VIRAFERONPEG [Suspect]
     Indication: HEPATITIS C
     Dosage: 150 DF, QW
     Route: 065
     Dates: start: 20140302
  3. RIBAVIRIN [Suspect]
     Indication: HEPATITIS C
     Dosage: DOSAGE FORM: UNSPECIFIED, 400 MG AM AND 600 MG PM
     Route: 065
     Dates: start: 20140303

REACTIONS (3)
  - Arrhythmia [Fatal]
  - Myocardial fibrosis [Fatal]
  - Pneumonia [Fatal]
